FAERS Safety Report 11277826 (Version 2)
Quarter: 2015Q4

REPORT INFORMATION
  Report Type: Spontaneous
  Country: US (occurrence: US)
  Receive Date: 20150716
  Receipt Date: 20151119
  Transmission Date: 20160304
  Serious: Yes (Hospitalization)
  Sender: FDA-Public Use
  Company Number: US-ACTELION-A-NJ2015-120809

PATIENT
  Age: 85 Year
  Sex: Male
  Weight: 73.16 kg

DRUGS (5)
  1. FINASTERIDE. [Concomitant]
     Active Substance: FINASTERIDE
     Indication: PROSTATOMEGALY
     Dosage: 5 MG, QD
     Route: 048
  2. COUMADIN [Concomitant]
     Active Substance: WARFARIN SODIUM
     Indication: ATRIAL FIBRILLATION
     Dosage: 2.5 MG, QD
     Route: 048
  3. VALCHLOR [Suspect]
     Active Substance: MECHLORETHAMINE
     Indication: MYCOSIS FUNGOIDES
     Dosage: UNK, QD
     Route: 061
     Dates: start: 20140105, end: 20150605
  4. TAMSULOSIN [Concomitant]
     Active Substance: TAMSULOSIN
     Indication: PROSTATOMEGALY
     Dosage: 0.4 MG, QD
     Route: 048
  5. METOPROLOL [Concomitant]
     Active Substance: METOPROLOL
     Indication: HYPERTENSION
     Dosage: 50 MG, QD
     Route: 048

REACTIONS (14)
  - Dyspnoea [Recovered/Resolved with Sequelae]
  - Atelectasis [Recovered/Resolved with Sequelae]
  - Haematoma [Recovered/Resolved]
  - Accident [Recovered/Resolved]
  - Pulmonary contusion [Recovered/Resolved with Sequelae]
  - Pleural effusion [Recovered/Resolved]
  - Fall [Recovered/Resolved]
  - Rib fracture [Recovered/Resolved]
  - Diarrhoea [Recovered/Resolved]
  - Thoracostomy [Recovered/Resolved]
  - Clostridium difficile colitis [Recovered/Resolved]
  - Pneumothorax [Recovered/Resolved with Sequelae]
  - Pneumonia [Recovered/Resolved with Sequelae]
  - Chest pain [Recovered/Resolved]

NARRATIVE: CASE EVENT DATE: 20150605
